FAERS Safety Report 16817893 (Version 5)
Quarter: 2020Q1

REPORT INFORMATION
  Report Type: Report from Study
  Country: JP (occurrence: JP)
  Receive Date: 20190917
  Receipt Date: 20200115
  Transmission Date: 20200409
  Serious: Yes (Hospitalization)
  Sender: FDA-Public Use
  Company Number: JP-EISAI MEDICAL RESEARCH-EC-2019-062170

PATIENT
  Age: 72 Year
  Sex: Male
  Weight: 77 kg

DRUGS (19)
  1. THYRADIN S [Concomitant]
     Active Substance: LEVOTHYROXINE SODIUM
  2. MOSAPRIDE CITRATE HYDRATE [Concomitant]
     Active Substance: MOSAPRIDE CITRATE DIHYDRATE
  3. BROTIZOLAM [Concomitant]
     Active Substance: BROTIZOLAM
  4. DERMOVATE SCALP [Concomitant]
     Active Substance: CLOBETASOL
  5. LENVATINIB [Suspect]
     Active Substance: LENVATINIB
     Route: 048
     Dates: start: 20180719, end: 20190905
  6. REBAMIPIDE [Concomitant]
     Active Substance: REBAMIPIDE
  7. DIACORT [Concomitant]
     Active Substance: DIFLORASONE DIACETATE
  8. HIRUDOID [Concomitant]
     Active Substance: GLYCOSAMINOGLYCANS
  9. AZULENE [Concomitant]
     Active Substance: AZULENE
  10. FEBURIC [Concomitant]
     Active Substance: FEBUXOSTAT
  11. LENVATINIB [Suspect]
     Active Substance: LENVATINIB
     Indication: HEPATOCELLULAR CARCINOMA
     Route: 048
     Dates: start: 20171102, end: 20180718
  12. PEMBROLIZUMAB. [Suspect]
     Active Substance: PEMBROLIZUMAB
     Indication: HEPATOCELLULAR CARCINOMA
     Route: 041
     Dates: start: 20171102, end: 20190904
  13. URSODEOXYCHOLIC ACID [Concomitant]
     Active Substance: URSODIOL
  14. LOPERAMIDE HYDROCHLORIDE. [Concomitant]
     Active Substance: LOPERAMIDE HYDROCHLORIDE
  15. GENTACIN [Concomitant]
     Active Substance: GENTAMICIN SULFATE
  16. LAC-B [Concomitant]
     Active Substance: BIFIDOBACTERIUM SPP.
  17. CORTYZINE [Concomitant]
  18. CLARITIN [Concomitant]
     Active Substance: LORATADINE
  19. AMLODIPINE [Concomitant]
     Active Substance: AMLODIPINE BESYLATE

REACTIONS (1)
  - Immune-mediated pneumonitis [Recovered/Resolved]

NARRATIVE: CASE EVENT DATE: 20190903
